FAERS Safety Report 6188800-1 (Version None)
Quarter: 2009Q2

REPORT INFORMATION
  Report Type: 
  Country: None (occurrence: None)
  Receive Date: 20090513
  Receipt Date: 20090501
  Transmission Date: 20091009
  Serious: Yes (Other)
  Sender: FDA-Public Use
  Company Number: US-PFIZER INC-2009207924

PATIENT
  Sex: Male
  Weight: 79.365 kg

DRUGS (2)
  1. DILANTIN-125 [Suspect]
     Indication: EPILEPSY
     Dosage: UNK
  2. DIPHTHERIA AND TETANUS TOXOIDS AND PERTUSSIS [Suspect]
     Dosage: UNK

REACTIONS (3)
  - ANTICONVULSANT DRUG LEVEL DECREASED [None]
  - BLOOD PRESSURE INCREASED [None]
  - UNEVALUABLE EVENT [None]
